FAERS Safety Report 5320469-8 (Version None)
Quarter: 2007Q1

REPORT INFORMATION
  Report Type: 
  Country: None (occurrence: None)
  Receive Date: 20070215
  Receipt Date: 20060710
  Transmission Date: 20070707
  Serious: Yes (Other)
  Sender: FDA-Public Use
  Company Number: MC200600458

PATIENT
  Age: 64 Year
  Sex: Female

DRUGS (1)
  1. ANGIOMAX [Suspect]
     Indication: PERIPHERAL VASCULAR DISORDER
     Dates: start: 20060710

REACTIONS (1)
  - ANAPHYLACTIC REACTION [None]
